FAERS Safety Report 4948129-3 (Version None)
Quarter: 2006Q1

REPORT INFORMATION
  Report Type: 
  Country: None (occurrence: None)
  Receive Date: 20060313
  Receipt Date: 20060228
  Transmission Date: 20060701
  Serious: Yes (Hospitalization, Other)
  Sender: FDA-Public Use
  Company Number: HQWYE694723NOV05

PATIENT
  Age: 47 Year
  Sex: Male

DRUGS (7)
  1. RAPAMUNE [Suspect]
     Indication: PROPHYLAXIS AGAINST TRANSPLANT REJECTION
     Dosage: 5 MG 1X PER 1 DAY ORAL
     Route: 048
     Dates: start: 20051116, end: 20051121
  2. RAPAMUNE [Suspect]
     Indication: PROPHYLAXIS AGAINST TRANSPLANT REJECTION
     Dosage: 5 MG 1X PER 1 DAY ORAL
     Route: 048
     Dates: start: 20051205
  3. RAPAMUNE [Suspect]
  4. PENTOXIFYLLINE [Concomitant]
  5. FRAXIPARINE (HEPARIN-FRACTION) [Concomitant]
  6. CELLCEPT [Concomitant]
  7. CELLCEPT [Concomitant]

REACTIONS (11)
  - BLOOD ALKALINE PHOSPHATASE INCREASED [None]
  - BLOOD CHOLESTEROL INCREASED [None]
  - BLOOD CREATININE INCREASED [None]
  - BLOOD GLUCOSE INCREASED [None]
  - BLOOD LACTATE DEHYDROGENASE INCREASED [None]
  - BLOOD TRIGLYCERIDES INCREASED [None]
  - BLOOD URIC ACID INCREASED [None]
  - COMPLICATIONS OF TRANSPLANTED KIDNEY [None]
  - DRUG INEFFECTIVE [None]
  - HIGH DENSITY LIPOPROTEIN DECREASED [None]
  - THROMBOCYTOPENIA [None]
